FAERS Safety Report 16045270 (Version 16)
Quarter: 2022Q1

REPORT INFORMATION
  Report Type: Report from Study
  Country: US (occurrence: US)
  Receive Date: 20190307
  Receipt Date: 20220301
  Transmission Date: 20220423
  Serious: Yes (Hospitalization, Disabling, Other)
  Sender: FDA-Public Use
  Company Number: US-SA-2018SA272546

PATIENT
  Age: 50 Year
  Sex: Male
  Weight: 99 kg

DRUGS (6)
  1. ALGLUCOSIDASE ALFA [Suspect]
     Active Substance: ALGLUCOSIDASE ALFA
     Indication: Glycogen storage disease type II
     Dosage: 2350 MG, QOW
     Route: 041
     Dates: start: 20150211, end: 2015
  2. ALGLUCOSIDASE ALFA [Suspect]
     Active Substance: ALGLUCOSIDASE ALFA
     Dosage: 41 OR 42 VIALS, QOW
     Route: 041
     Dates: start: 2015
  3. ALGLUCOSIDASE ALFA [Suspect]
     Active Substance: ALGLUCOSIDASE ALFA
     Dosage: 2350 MG, QOW
     Route: 041
     Dates: start: 20180326
  4. BENADRYL [Concomitant]
     Active Substance: DIPHENHYDRAMINE HYDROCHLORIDE
     Dosage: 50 MG
     Route: 048
  5. BUPRENORPHINE [Concomitant]
     Active Substance: BUPRENORPHINE
     Dosage: UNK
     Route: 065
  6. ZOLPIDEM [Concomitant]
     Active Substance: ZOLPIDEM TARTRATE
     Dosage: UNK
     Route: 065

REACTIONS (28)
  - Chest pain [Not Recovered/Not Resolved]
  - Vascular device occlusion [Unknown]
  - Heart rate increased [Not Recovered/Not Resolved]
  - Blood pressure increased [Not Recovered/Not Resolved]
  - Walking aid user [Unknown]
  - Limb injury [Unknown]
  - Blister rupture [Not Recovered/Not Resolved]
  - Oedema [Not Recovered/Not Resolved]
  - Peripheral swelling [Unknown]
  - Blister [Recovered/Resolved]
  - Peripheral swelling [Not Recovered/Not Resolved]
  - Influenza [Recovered/Resolved]
  - Illness [Recovered/Resolved]
  - Asthenia [Unknown]
  - Vocal cord disorder [Unknown]
  - Memory impairment [Unknown]
  - Muscular weakness [Not Recovered/Not Resolved]
  - Pain in extremity [Not Recovered/Not Resolved]
  - Musculoskeletal chest pain [Unknown]
  - Wound secretion [Unknown]
  - Erythema [Not Recovered/Not Resolved]
  - Feeling hot [Not Recovered/Not Resolved]
  - Chest discomfort [Unknown]
  - Sensory disturbance [Recovered/Resolved]
  - Scab [Unknown]
  - Blister [Unknown]
  - Sensory loss [Not Recovered/Not Resolved]
  - Fatigue [Recovered/Resolved]

NARRATIVE: CASE EVENT DATE: 20190101
